FAERS Safety Report 18643011 (Version 1)
Quarter: 2020Q4

REPORT INFORMATION
  Report Type: Spontaneous
  Country: FR (occurrence: FR)
  Receive Date: 20201221
  Receipt Date: 20201221
  Transmission Date: 20210114
  Serious: Yes (Other)
  Sender: FDA-Public Use
  Company Number: FR-009507513-2012FRA006101

PATIENT
  Age: 50 Year
  Sex: Male

DRUGS (3)
  1. REBETOL [Suspect]
     Active Substance: RIBAVIRIN
     Dosage: UNK
     Route: 048
     Dates: start: 20151222, end: 20160607
  2. SOVALDI [Concomitant]
     Active Substance: SOFOSBUVIR
     Dosage: UNK
     Dates: start: 20151222, end: 20160607
  3. DAKLINZA [Concomitant]
     Active Substance: DACLATASVIR
     Dosage: UNK
     Dates: start: 20151222, end: 20160607

REACTIONS (1)
  - Hepatocellular carcinoma [Unknown]

NARRATIVE: CASE EVENT DATE: 20180427
